FAERS Safety Report 7825191 (Version 3)
Quarter: 2012Q4

REPORT INFORMATION
  Report Type: 
  Country: JP (occurrence: US)
  Receive Date: 20110224
  Receipt Date: 20120928
  Transmission Date: 20130627
  Serious: Yes (Hospitalization, Other)
  Sender: FDA-Public Use
  Company Number: US-JNJFOC-20101000346

PATIENT
  Sex: Male

DRUGS (6)
  1. LEVAQUIN [Suspect]
     Indication: PROSTATE INFECTION
     Route: 048
  2. LEVAQUIN [Suspect]
     Indication: PROSTATE INFECTION
     Route: 048
  3. LEVAQUIN [Suspect]
     Indication: PROSTATE INFECTION
     Route: 048
     Dates: start: 200607
  4. LEVAQUIN [Suspect]
     Indication: URINARY TRACT INFECTION
     Route: 048
  5. LEVAQUIN [Suspect]
     Indication: URINARY TRACT INFECTION
     Route: 048
  6. LEVAQUIN [Suspect]
     Indication: URINARY TRACT INFECTION
     Route: 048
     Dates: start: 200607

REACTIONS (4)
  - Rotator cuff syndrome [Unknown]
  - Tendon rupture [Unknown]
  - Tendon rupture [Unknown]
  - Arthropathy [Unknown]
